FAERS Safety Report 21885384 (Version 1)
Quarter: 2023Q1

REPORT INFORMATION
  Report Type: Spontaneous
  Country: US (occurrence: None)
  Receive Date: 20230119
  Receipt Date: 20230119
  Transmission Date: 20230417
  Serious: No
  Sender: FDA-Public Use
  Company Number: 2023A007402

PATIENT
  Sex: Female

DRUGS (1)
  1. TEZSPIRE [Suspect]
     Active Substance: TEZEPELUMAB-EKKO
     Indication: Asthma
     Dosage: 210MG EVERY 28 DAYS
     Route: 058
     Dates: start: 20220624

REACTIONS (5)
  - Skin discolouration [Recovered/Resolved]
  - Skin exfoliation [Recovered/Resolved]
  - Hypoaesthesia [Recovered/Resolved]
  - Back pain [Recovered/Resolved]
  - Arthralgia [Recovered/Resolved]
